FAERS Safety Report 8271421-4 (Version None)
Quarter: 2012Q2

REPORT INFORMATION
  Report Type: 
  Country: None (occurrence: None)
  Receive Date: 20120410
  Receipt Date: 20120405
  Transmission Date: 20120825
  Serious: Yes (Hospitalization)
  Sender: FDA-Public Use
  Company Number: PHHY2012FR029473

PATIENT
  Age: 78 Year
  Sex: Female
  Weight: 62 kg

DRUGS (9)
  1. CHONDROSULF [Concomitant]
  2. EZETIMIBE [Concomitant]
     Dates: start: 20100101
  3. GLUCOSAMINE [Concomitant]
  4. LERCANIDIPINE [Concomitant]
  5. EUPRESSYL [Concomitant]
     Dates: start: 20110101
  6. POTASSIUM CHLORIDE [Concomitant]
     Dosage: UNK
  7. ZOLEDRONOC ACID [Suspect]
     Route: 042
     Dates: start: 20120101
  8. CRESTOR [Concomitant]
     Dosage: UNK
  9. ASPIRIN [Concomitant]
     Dosage: UNK

REACTIONS (2)
  - CEREBROVASCULAR ACCIDENT [None]
  - MALAISE [None]
